FAERS Safety Report 4781081-2 (Version None)
Quarter: 2005Q3

REPORT INFORMATION
  Report Type: 
  Country: None (occurrence: None)
  Receive Date: 20050928
  Receipt Date: 20050920
  Transmission Date: 20060218
  Serious: Yes (Other)
  Sender: FDA-Public Use
  Company Number: ES-JNJFOC-20050701026

PATIENT

DRUGS (1)
  1. REMICADE [Suspect]
     Indication: ANKYLOSING SPONDYLITIS
     Dosage: REACTION AFTER 5TH INFUSION
     Route: 042

REACTIONS (5)
  - ANTINUCLEAR ANTIBODY POSITIVE [None]
  - ARTHRALGIA [None]
  - DOUBLE STRANDED DNA ANTIBODY [None]
  - INFUSION RELATED REACTION [None]
  - TYPE IV HYPERSENSITIVITY REACTION [None]
